FAERS Safety Report 26137673 (Version 1)
Quarter: 2025Q4

REPORT INFORMATION
  Report Type: Report from Study
  Country: EU (occurrence: EU)
  Receive Date: 20251209
  Receipt Date: 20251209
  Transmission Date: 20260118
  Serious: Yes (Other)
  Sender: ROCHE
  Company Number: EU-ROCHE-10000451176

PATIENT
  Age: 87 Year
  Sex: Male

DRUGS (1)
  1. FARICIMAB [Suspect]
     Active Substance: FARICIMAB
     Indication: Neovascular age-related macular degeneration
     Dosage: DOSE CONCENTRATION 120 MG/ML?TOTAL VOLUME PRIOR AE 0.05 ML?ON 08-SEP-2025, HE RECEIVED MOST RECENT DOSE OF FARICIMAB 6 MG PRIOR TO AE.
     Dates: start: 20250115

REACTIONS (1)
  - Retinal degeneration [Recovering/Resolving]

NARRATIVE: CASE EVENT DATE: 20251022
